FAERS Safety Report 4555425-0 (Version None)
Quarter: 2005Q1

REPORT INFORMATION
  Report Type: 
  Country: None (occurrence: None)
  Receive Date: 20050118
  Receipt Date: 20050118
  Transmission Date: 20050727
  Serious: Yes (Hospitalization)
  Sender: FDA-Public Use
  Company Number: None

PATIENT
  Age: 60 Year
  Sex: Male

DRUGS (4)
  1. EPTIFIBATIDE  0.75MG/ML   MILLENIUM PHARMACEUTICALS [Suspect]
     Indication: ANTICOAGULANT THERAPY
     Dates: start: 20041201, end: 20041202
  2. EPTIFIBATIDE  0.75MG/ML   MILLENIUM PHARMACEUTICALS [Suspect]
     Indication: STENT PLACEMENT
     Dates: start: 20041201, end: 20041202
  3. HEPARIN [Suspect]
     Indication: ANTICOAGULANT THERAPY
     Dates: start: 20041101, end: 20041202
  4. HEPARIN [Suspect]
     Indication: STENT PLACEMENT
     Dates: start: 20041101, end: 20041202

REACTIONS (2)
  - POST PROCEDURAL COMPLICATION [None]
  - THROMBOCYTOPENIA [None]
